FAERS Safety Report 24693204 (Version 3)
Quarter: 2025Q1

REPORT INFORMATION
  Report Type: Report from Study
  Country: CO (occurrence: CO)
  Receive Date: 20241203
  Receipt Date: 20250113
  Transmission Date: 20250409
  Serious: Yes (Other)
  Sender: APELLIS PHARMACEUTICALS
  Company Number: CO-BIOVITRUM-2024-CO-015261

PATIENT
  Weight: 83 kg

DRUGS (1)
  1. PEGCETACOPLAN [Suspect]
     Active Substance: PEGCETACOPLAN
     Indication: Paroxysmal nocturnal haemoglobinuria
     Dosage: 1080 MG/20ML WITH ADMINISTRATION FREQUENCY OF 1 AMPOULE OF 54MG 2 TIMES PER WEEK
     Route: 058
     Dates: start: 20231218, end: 20241101

REACTIONS (1)
  - Haemolysis [Not Recovered/Not Resolved]

NARRATIVE: CASE EVENT DATE: 20241110
